FAERS Safety Report 5904383-2 (Version None)
Quarter: 2008Q4

REPORT INFORMATION
  Report Type: 
  Country: None (occurrence: None)
  Receive Date: 20081001
  Receipt Date: 20080926
  Transmission Date: 20090506
  Serious: Yes (Other)
  Sender: FDA-Public Use
  Company Number: PHBS2008MX05833

PATIENT
  Age: 60 Year
  Sex: Male

DRUGS (6)
  1. CLOFAZIMINE [Suspect]
     Indication: LEPROMATOUS LEPROSY
     Dosage: 300 MG/DAY
  2. CLOFAZIMINE [Suspect]
     Dosage: 50 MG/DAY
  3. RIFAMPICIN [Suspect]
     Indication: LEPROMATOUS LEPROSY
     Dosage: 600 MG/DAY
  4. DAPSONE [Suspect]
     Dosage: 100 MG/DAY
  5. PREDNISONE [Concomitant]
     Dosage: 50 MG/DAY
  6. OFLOXACIN [Concomitant]
     Dosage: 400 MG/DAY

REACTIONS (11)
  - ANAESTHESIA [None]
  - CONDITION AGGRAVATED [None]
  - DYSAESTHESIA [None]
  - DYSPNOEA [None]
  - LEPROMATOUS LEPROSY [None]
  - LYMPHOCYTIC INFILTRATION [None]
  - MALAISE [None]
  - NEUROPATHY PERIPHERAL [None]
  - PATHOLOGY TEST [None]
  - PYREXIA [None]
  - SMEAR SITE UNSPECIFIED ABNORMAL [None]
